FAERS Safety Report 9776055 (Version 2)
Quarter: 2013Q4

REPORT INFORMATION
  Report Type: Report from Study
  Country: RU (occurrence: RU)
  Receive Date: 20131220
  Receipt Date: 20131220
  Transmission Date: 20140711
  Serious: Yes (Other)
  Sender: FDA-Public Use
  Company Number: RU-MERCK-1211RUS005118

PATIENT
  Age: 64 Year
  Sex: Female
  Weight: 69.2 kg

DRUGS (5)
  1. BOCEPREVIR [Suspect]
     Indication: CHRONIC HEPATITIS C
     Dosage: 800 MG, TID
     Route: 048
     Dates: start: 20120413
  2. PEGINTRON [Suspect]
     Indication: CHRONIC HEPATITIS C
     Dosage: 96 MICROGRAM, O.5 ML QW
     Route: 058
     Dates: start: 20120316
  3. PEGINTRON [Suspect]
     Dosage: 72 MICROGRAM, QW
     Route: 058
     Dates: start: 20120713
  4. REBETOL [Suspect]
     Indication: CHRONIC HEPATITIS C
     Dosage: 1000 MG QD
     Route: 048
     Dates: start: 20120316
  5. REBETOL [Suspect]
     Dosage: 600 MG, QD
     Route: 048
     Dates: start: 20120713

REACTIONS (1)
  - Neutropenia [Recovered/Resolved]
